FAERS Safety Report 9578027 (Version 2)
Quarter: 2013Q4

REPORT INFORMATION
  Report Type: Spontaneous
  Country: US (occurrence: US)
  Receive Date: 20131001
  Receipt Date: 20131001
  Transmission Date: 20140711
  Serious: Yes (Hospitalization, Other)
  Sender: FDA-Public Use
  Company Number: US-AMGEN-USASP2013007596

PATIENT
  Sex: Female
  Weight: 45.35 kg

DRUGS (5)
  1. ENBREL [Suspect]
     Indication: RHEUMATOID ARTHRITIS
     Dosage: 50 MG, QWK AS DIRECTED
  2. PREDNISONE [Concomitant]
     Dosage: 10 MG, UNK
  3. CAFERGOT [Concomitant]
     Dosage: 1-100 MG, UNK
  4. ARAVA [Concomitant]
     Dosage: 20 MG, UNK
  5. VITAMIN B12                        /00056201/ [Concomitant]
     Dosage: 1000 UNK, UNK

REACTIONS (2)
  - Gastrointestinal infection [Unknown]
  - Chest pain [Unknown]
